FAERS Safety Report 7467980-1 (Version None)
Quarter: 2011Q2

REPORT INFORMATION
  Report Type: 
  Country: None (occurrence: None)
  Receive Date: 20110509
  Receipt Date: 20110223
  Transmission Date: 20111010
  Serious: No
  Sender: FDA-Public Use
  Company Number: US-ALEXION-A201100244

PATIENT
  Sex: Male

DRUGS (5)
  1. IRON [Concomitant]
     Dosage: UNK
  2. SOLIRIS [Suspect]
     Dosage: 900 MG, Q2W
     Route: 042
     Dates: start: 20110322
  3. SOLIRIS [Suspect]
     Indication: PAROXYSMAL NOCTURNAL HAEMOGLOBINURIA
     Dosage: 600 MG, UNK
     Route: 042
     Dates: start: 20110222, end: 20110321
  4. INSULIN [Concomitant]
     Dosage: UNK
  5. MULTI-VITAMIN [Concomitant]
     Dosage: UNK

REACTIONS (3)
  - RHINORRHOEA [None]
  - PYREXIA [None]
  - HEADACHE [None]
